FAERS Safety Report 9406893 (Version 1)
Quarter: 2013Q3

REPORT INFORMATION
  Report Type: Report from Study
  Country: BR (occurrence: BR)
  Receive Date: 20130718
  Receipt Date: 20130718
  Transmission Date: 20140515
  Serious: Yes (Other)
  Sender: FDA-Public Use
  Company Number: PHHY2013BR076008

PATIENT
  Age: 69 Year
  Sex: Male

DRUGS (2)
  1. STARLIX [Suspect]
     Indication: DIABETES MELLITUS
     Dosage: 1 DF, DAILY
  2. STARLIX [Suspect]
     Dosage: 0.5 DF, UNK

REACTIONS (4)
  - Cerebrovascular accident [Recovering/Resolving]
  - Speech disorder [Recovering/Resolving]
  - Monoplegia [Recovering/Resolving]
  - Wrong technique in drug usage process [Unknown]
